FAERS Safety Report 9134558 (Version 3)
Quarter: 2013Q2

REPORT INFORMATION
  Report Type: Spontaneous
  Country: US (occurrence: US)
  Receive Date: 20130304
  Receipt Date: 20130524
  Transmission Date: 20140414
  Serious: Yes (Hospitalization, Other)
  Sender: FDA-Public Use
  Company Number: PHEH2013US004691

PATIENT
  Sex: Male

DRUGS (3)
  1. GLEEVEC [Suspect]
     Indication: WHITE BLOOD CELL COUNT INCREASED
     Dosage: UNK UKN, UNK
  2. DIOVAN [Suspect]
     Indication: HYPERTENSION
     Dosage: 80 MG, UNK
     Route: 048
  3. DIOVAN [Suspect]
     Dosage: 160 MG, UNK
     Route: 048

REACTIONS (5)
  - Fluid retention [Unknown]
  - Macular degeneration [Unknown]
  - Visual impairment [Unknown]
  - Dyspnoea [Unknown]
  - Blood pressure increased [Unknown]
